FAERS Safety Report 6518065-X (Version None)
Quarter: 2009Q4

REPORT INFORMATION
  Report Type: 
  Country: None (occurrence: None)
  Receive Date: 20091218
  Receipt Date: 20091207
  Transmission Date: 20100525
  Serious: Yes (Other)
  Sender: FDA-Public Use
  Company Number: 230032M09CHE

PATIENT
  Sex: Female

DRUGS (2)
  1. REBIF [Suspect]
     Dosage: 44 MCG, 3 IN 1 WEEKS
     Dates: start: 20060601, end: 20090201
  2. CORTISON (CORTISONE ACETATE) [Concomitant]

REACTIONS (3)
  - ARTHRALGIA [None]
  - BONE INFARCTION [None]
  - OSTEONECROSIS [None]
